FAERS Safety Report 21242176 (Version 1)
Quarter: 2022Q3

REPORT INFORMATION
  Report Type: Spontaneous
  Country: FR (occurrence: FR)
  Receive Date: 20220823
  Receipt Date: 20220823
  Transmission Date: 20221026
  Serious: Yes (Hospitalization)
  Sender: FDA-Public Use
  Company Number: None

PATIENT
  Age: 36 Year
  Sex: Female
  Weight: 75 kg

DRUGS (3)
  1. QUETIAPINE [Suspect]
     Active Substance: QUETIAPINE
     Indication: Intentional overdose
     Dosage: NP, DURATION : 1 DAY
     Dates: start: 20220606, end: 20220606
  2. CYAMEMAZINE [Suspect]
     Active Substance: CYAMEMAZINE
     Indication: Intentional overdose
     Dosage: STRENGTH: 25 MG, SCORED FILM-COATED TABLET, UNIT DOSE: 70 DF, DURATION : 1 DAY
     Dates: start: 20220606, end: 20220606
  3. OXAZEPAM [Suspect]
     Active Substance: OXAZEPAM
     Indication: Intentional overdose
     Dosage: STRENGTH: 10 MG, UNIT DOSE : 150 DF, DURATION : 1 DAY
     Dates: start: 20220606, end: 20220606

REACTIONS (5)
  - Hypotension [Recovered/Resolved]
  - Poisoning deliberate [Recovered/Resolved with Sequelae]
  - Coma [Recovered/Resolved]
  - Tachycardia [Not Recovered/Not Resolved]
  - Electrocardiogram QT prolonged [Recovered/Resolved]

NARRATIVE: CASE EVENT DATE: 20220606
